FAERS Safety Report 20008523 (Version 1)
Quarter: 2021Q4

REPORT INFORMATION
  Report Type: Spontaneous
  Country: US (occurrence: US)
  Receive Date: 20211028
  Receipt Date: 20211028
  Transmission Date: 20220304
  Serious: Yes (Other)
  Sender: FDA-Public Use
  Company Number: 2021A784782

PATIENT
  Sex: Female
  Weight: 74.4 kg

DRUGS (1)
  1. TAGRISSO [Suspect]
     Active Substance: OSIMERTINIB
     Indication: Lung carcinoma cell type unspecified stage I
     Route: 048
     Dates: start: 201806

REACTIONS (6)
  - Malignant neoplasm progression [Unknown]
  - Cellulitis [Unknown]
  - Fatigue [Unknown]
  - Decreased appetite [Unknown]
  - Therapeutic response decreased [Unknown]
  - Product dose omission issue [Unknown]
